FAERS Safety Report 14519616 (Version 1)
Quarter: 2018Q1

REPORT INFORMATION
  Report Type: Spontaneous
  Country: US (occurrence: US)
  Receive Date: 20180210
  Receipt Date: 20180210
  Transmission Date: 20180509
  Serious: Yes (Hospitalization)
  Sender: FDA-Public Use
  Company Number: None

PATIENT
  Age: 63 Year
  Sex: Female
  Weight: 94.5 kg

DRUGS (1)
  1. ENTYVIO [Suspect]
     Active Substance: VEDOLIZUMAB
     Dosage: IV EVERY SIX WEEKS?
     Route: 042

REACTIONS (2)
  - Infusion related reaction [None]
  - Cerebrovascular accident [None]

NARRATIVE: CASE EVENT DATE: 20171111
